FAERS Safety Report 11892704 (Version 3)
Quarter: 2016Q1

REPORT INFORMATION
  Report Type: Spontaneous
  Country: US (occurrence: US)
  Receive Date: 20160106
  Receipt Date: 20160212
  Transmission Date: 20160526
  Serious: No
  Sender: FDA-Public Use
  Company Number: US-PFIZER INC-2015438884

PATIENT
  Age: 54 Year
  Sex: Male
  Weight: 99.79 kg

DRUGS (8)
  1. ADVIL [Suspect]
     Active Substance: IBUPROFEN
     Indication: SPINAL COLUMN STENOSIS
  2. ADVIL [Suspect]
     Active Substance: IBUPROFEN
     Indication: NECK PAIN
  3. ADVIL [Suspect]
     Active Substance: IBUPROFEN
     Indication: MUSCULOSKELETAL PAIN
  4. ADVIL [Suspect]
     Active Substance: IBUPROFEN
     Indication: MUSCULOSKELETAL PAIN
  5. ADVIL [Suspect]
     Active Substance: IBUPROFEN
     Indication: SPINAL COLUMN STENOSIS
  6. ADVIL [Suspect]
     Active Substance: IBUPROFEN
     Indication: NECK PAIN
  7. ADVIL [Suspect]
     Active Substance: IBUPROFEN
     Indication: NECK INJURY
     Dosage: 800 MG, 3X/DAY
     Dates: start: 201509
  8. ADVIL [Suspect]
     Active Substance: IBUPROFEN
     Indication: NECK INJURY
     Dosage: UNK
     Route: 048

REACTIONS (4)
  - Overdose [Recovered/Resolved]
  - Poor quality drug administered [Recovered/Resolved]
  - Drug ineffective [Recovered/Resolved]
  - Product commingling [Recovered/Resolved]

NARRATIVE: CASE EVENT DATE: 201509
